FAERS Safety Report 11975802 (Version 1)
Quarter: 2016Q1

REPORT INFORMATION
  Report Type: Spontaneous
  Country: US (occurrence: US)
  Receive Date: 20160129
  Receipt Date: 20160129
  Transmission Date: 20160526
  Serious: No
  Sender: FDA-Public Use
  Company Number: US-BIOGEN-2016BI00172182

PATIENT

DRUGS (2)
  1. TECFIDERA [Suspect]
     Active Substance: DIMETHYL FUMARATE
     Route: 048
     Dates: start: 20151201
  2. TECFIDERA [Suspect]
     Active Substance: DIMETHYL FUMARATE
     Indication: MULTIPLE SCLEROSIS
     Route: 048
     Dates: start: 20151201

REACTIONS (1)
  - Adverse reaction [Recovered/Resolved]

NARRATIVE: CASE EVENT DATE: 20151227
